FAERS Safety Report 25311081 (Version 1)
Quarter: 2025Q2

REPORT INFORMATION
  Report Type: Spontaneous
  Country: US (occurrence: US)
  Receive Date: 20250514
  Receipt Date: 20250514
  Transmission Date: 20250716
  Serious: Yes (Death, Life-Threatening, Hospitalization)
  Sender: ACCORD
  Company Number: US-MLMSERVICE-20250425-PI491195-00117-1

PATIENT
  Age: 58 Year
  Sex: Male

DRUGS (16)
  1. BENDAMUSTINE [Suspect]
     Active Substance: BENDAMUSTINE
     Indication: Waldenstrom^s macroglobulinaemia
  2. BORTEZOMIB [Suspect]
     Active Substance: BORTEZOMIB
     Indication: Waldenstrom^s macroglobulinaemia
  3. DARATUMUMAB [Suspect]
     Active Substance: DARATUMUMAB
     Indication: Waldenstrom^s macroglobulinaemia
  4. POMALIDOMIDE [Suspect]
     Active Substance: POMALIDOMIDE
     Indication: Waldenstrom^s macroglobulinaemia
  5. PREDNISONE [Suspect]
     Active Substance: PREDNISONE
     Indication: Autoimmune haemolytic anaemia
  6. DEXAMETHASONE [Suspect]
     Active Substance: DEXAMETHASONE
     Indication: Autoimmune haemolytic anaemia
     Dosage: 40MG GIVEN 3 DAYS MONTHLY IN 28-DAY CYCLES
  7. SUTIMLIMAB-JOME [Suspect]
     Active Substance: SUTIMLIMAB-JOME
     Indication: Autoimmune haemolytic anaemia
     Dosage: EVERY 2 WEEKS
  8. CARFILZOMIB [Suspect]
     Active Substance: CARFILZOMIB
     Indication: Autoimmune haemolytic anaemia
     Dosage: 3 DAYS MONTHLY IN 28-DAY CYCLES.
  9. RITUXIMAB [Suspect]
     Active Substance: RITUXIMAB
     Indication: Waldenstrom^s macroglobulinaemia
  10. CYCLOPHOSPHAMIDE [Suspect]
     Active Substance: CYCLOPHOSPHAMIDE
     Indication: Waldenstrom^s macroglobulinaemia
  11. VINCRISTINE [Suspect]
     Active Substance: VINCRISTINE
     Indication: Waldenstrom^s macroglobulinaemia
  12. LENALIDOMIDE [Suspect]
     Active Substance: LENALIDOMIDE
     Indication: Waldenstrom^s macroglobulinaemia
  13. PREDNISONE [Suspect]
     Active Substance: PREDNISONE
     Indication: Waldenstrom^s macroglobulinaemia
  14. PREDNISONE [Suspect]
     Active Substance: PREDNISONE
     Indication: Plasma cell myeloma
  15. DEXAMETHASONE [Suspect]
     Active Substance: DEXAMETHASONE
     Indication: Plasma cell myeloma
     Dosage: 40MG GIVEN 3 DAYS MONTHLY IN 28-DAY CYCLES
  16. CARFILZOMIB [Suspect]
     Active Substance: CARFILZOMIB
     Indication: Plasma cell myeloma
     Dosage: 3 DAYS MONTHLY IN 28-DAY CYCLES.

REACTIONS (6)
  - Disseminated varicella zoster virus infection [Fatal]
  - Hepatitis viral [Fatal]
  - Infection reactivation [Fatal]
  - Acute hepatic failure [Fatal]
  - Hepatic necrosis [Fatal]
  - Off label use [Unknown]
